FAERS Safety Report 21389055 (Version 2)
Quarter: 2022Q4

REPORT INFORMATION
  Report Type: Spontaneous
  Country: BR (occurrence: BR)
  Receive Date: 20220929
  Receipt Date: 20221004
  Transmission Date: 20230112
  Serious: Yes (Other)
  Sender: FDA-Public Use
  Company Number: BR-BAXTER-2022BAX019626

PATIENT
  Sex: Female

DRUGS (2)
  1. IRON [Suspect]
     Active Substance: IRON
     Dosage: 2 AMPOULES, TWICE A WEEK FOR 3 WEEKS
     Route: 042
     Dates: start: 202208, end: 202208
  2. SODIUM CHLORIDE [Suspect]
     Active Substance: SODIUM CHLORIDE
     Indication: Medication dilution
     Dosage: 2 AMPOULES OF SUCROFER DILUTED IN 250 MILLILITERS (ML) OF 0.9% SODIUM CHLORIDE TWICE A WEEK FOR 3 WE
     Route: 042
     Dates: start: 202208, end: 202208

REACTIONS (8)
  - Anaphylactic reaction [Unknown]
  - Product administration error [Unknown]
  - Nausea [Recovered/Resolved]
  - Swelling [Recovered/Resolved]
  - Dizziness [Recovered/Resolved]
  - Confusional state [Recovered/Resolved]
  - Hypotension [Recovered/Resolved]
  - Urticaria [Unknown]

NARRATIVE: CASE EVENT DATE: 20220801
